FAERS Safety Report 21471086 (Version 1)
Quarter: 2022Q4

REPORT INFORMATION
  Report Type: Report from Study
  Country: US (occurrence: US)
  Receive Date: 20221018
  Receipt Date: 20221018
  Transmission Date: 20230113
  Serious: Yes (Hospitalization, Other)
  Sender: FDA-Public Use
  Company Number: US-ELI_LILLY_AND_COMPANY-US202104003480

PATIENT
  Age: 61 Year
  Sex: Male
  Weight: 83.8 kg

DRUGS (10)
  1. SELPERCATINIB [Suspect]
     Active Substance: SELPERCATINIB
     Indication: Pancreatic carcinoma metastatic
     Dosage: 160 MG, BID
     Route: 048
     Dates: start: 20210309, end: 20210331
  2. METAMUCIL [Concomitant]
     Active Substance: PLANTAGO SEED
     Indication: Nutritional supplementation
     Dosage: 525 MG, 2 CAPS BID , PRN
     Route: 048
     Dates: start: 20190701
  3. ONDANSETRON [Concomitant]
     Active Substance: ONDANSETRON
     Indication: Nausea
     Dosage: 8 MG, 1 TAB Q8H, PRN
     Route: 048
     Dates: start: 20201111
  4. CREON [Concomitant]
     Active Substance: PANCRELIPASE AMYLASE\PANCRELIPASE LIPASE\PANCRELIPASE PROTEASE
     Indication: Liver function test increased
     Dosage: 36000 U, 2 CAPS BID X 90 DAYS
     Route: 048
     Dates: start: 20201116
  5. CHLORPHENAMINE;HYDROCODONE [Concomitant]
     Indication: Cough
     Dosage: 1 DOSAGE FORM, Q 12 H X 5 DAYS, PRN
     Route: 048
     Dates: start: 20210331, end: 20210404
  6. ROBITUSSIN COUGH DROPS [Concomitant]
     Indication: Cough
     Dosage: 10 ML ,Q4 H
     Route: 048
     Dates: start: 20210401
  7. AMBIEN [Concomitant]
     Active Substance: ZOLPIDEM TARTRATE
     Indication: Sleep disorder
     Dosage: 5 MG, 1 TABLET EACH EVENING, PRN
     Route: 048
     Dates: start: 20210218, end: 20210407
  8. AMBIEN [Concomitant]
     Active Substance: ZOLPIDEM TARTRATE
     Dosage: 5 MG, 1 TAB EACH EVENING, PRN X 15 DAYS
     Route: 048
     Dates: start: 20210409, end: 20210423
  9. CHLORPHENAMINE;HYDROCODONE [Concomitant]
     Indication: Cough
     Dosage: 5 ML Q12H, PRN X 5 DYAS
     Route: 048
     Dates: start: 20210401, end: 20210405
  10. MOMETASONE FUROATE [Concomitant]
     Active Substance: MOMETASONE FUROATE
     Indication: Nasal congestion
     Dosage: 1 DOSAGE FORM, PRN
     Route: 045
     Dates: start: 20210401

REACTIONS (4)
  - Drug-induced liver injury [Recovering/Resolving]
  - Blood bilirubin increased [Recovered/Resolved]
  - Alanine aminotransferase increased [Recovered/Resolved]
  - Aspartate aminotransferase increased [Recovered/Resolved]

NARRATIVE: CASE EVENT DATE: 20210406
